FAERS Safety Report 15245616 (Version 3)
Quarter: 2018Q4

REPORT INFORMATION
  Report Type: Spontaneous
  Country: FR (occurrence: FR)
  Receive Date: 20180806
  Receipt Date: 20181026
  Transmission Date: 20190204
  Serious: Yes (Hospitalization)
  Sender: FDA-Public Use
  Company Number: PHHY2018FR062962

PATIENT
  Age: 54 Year
  Sex: Female

DRUGS (24)
  1. SOTAGLIFLOZIN [Suspect]
     Active Substance: SOTAGLIFLOZIN
     Indication: TYPE 2 DIABETES MELLITUS
     Dosage: 2 DF, QD
     Route: 048
     Dates: start: 20180323, end: 20180419
  2. BISOPROLOL [Concomitant]
     Active Substance: BISOPROLOL
     Indication: HYPERTENSION
     Dosage: 7.5 MG, UNK
     Route: 048
  3. PARACETAMOL [Concomitant]
     Active Substance: ACETAMINOPHEN
     Indication: NASOPHARYNGITIS
     Dosage: 1 G, UNK
     Route: 048
     Dates: start: 20180522
  4. LANTUS [Suspect]
     Active Substance: INSULIN GLARGINE
     Dosage: 76 U, QD
     Route: 058
     Dates: start: 20180301, end: 20180301
  5. LANTUS [Suspect]
     Active Substance: INSULIN GLARGINE
     Dosage: 80 U, QD
     Route: 058
     Dates: start: 20180302, end: 20180308
  6. AMAREL [Suspect]
     Active Substance: GLIMEPIRIDE
     Indication: TYPE 2 DIABETES MELLITUS
     Dosage: 3 MG, UNK
     Route: 048
  7. SOTAGLIFLOZIN [Suspect]
     Active Substance: SOTAGLIFLOZIN
     Dosage: 2 DF, QD
     Route: 048
     Dates: start: 20180420, end: 20180524
  8. SOTAGLIFLOZIN [Suspect]
     Active Substance: SOTAGLIFLOZIN
     Dosage: 2 DF, QD
     Route: 048
     Dates: start: 20180614
  9. RAMIPRIL. [Concomitant]
     Active Substance: RAMIPRIL
     Indication: HYPERTENSION
     Dosage: 20 MG, UNK
     Route: 048
  10. ASPIRINE [Concomitant]
     Active Substance: ASPIRIN
     Indication: MYOCARDIAL INFARCTION
     Dosage: 100 MG, UNK
     Route: 048
  11. LEVOTHYROX [Concomitant]
     Active Substance: LEVOTHYROXINE
     Indication: HYPERTHYROIDISM
     Dosage: 75 MG, UNK
     Route: 048
  12. AMOXICILLIN. [Concomitant]
     Active Substance: AMOXICILLIN
     Indication: NASOPHARYNGITIS
     Dosage: 3 G, UNK
     Route: 048
     Dates: start: 20180522
  13. LANTUS [Suspect]
     Active Substance: INSULIN GLARGINE
     Indication: TYPE 2 DIABETES MELLITUS
     Dosage: 72 U, QD
     Route: 058
     Dates: start: 20180226, end: 20180228
  14. SOTAGLIFLOZIN [Suspect]
     Active Substance: SOTAGLIFLOZIN
     Dosage: 2 DF, QD
     Route: 048
     Dates: start: 20180525
  15. TRINITRIN [Concomitant]
     Active Substance: NITROGLYCERIN
     Indication: MYOCARDIAL INFARCTION
     Dosage: 1 DF, PRN
     Route: 050
     Dates: start: 20150523
  16. PARACETAMOL [Concomitant]
     Active Substance: ACETAMINOPHEN
     Dosage: 1 G, UNK
     Route: 048
     Dates: start: 20180529
  17. PARACETAMOL [Concomitant]
     Active Substance: ACETAMINOPHEN
     Indication: GASTROENTERITIS
     Dosage: UNK
     Route: 048
     Dates: start: 20180319, end: 20180321
  18. AMOXICILLIN. [Concomitant]
     Active Substance: AMOXICILLIN
     Dosage: 3 G
     Route: 048
     Dates: start: 20180522, end: 20180529
  19. LANTUS [Suspect]
     Active Substance: INSULIN GLARGINE
     Dosage: 84 U, QD
     Route: 058
     Dates: start: 20180309
  20. LANTUS [Suspect]
     Active Substance: INSULIN GLARGINE
     Dosage: 84 U, QD
     Route: 058
     Dates: start: 20180322
  21. AMAREL [Suspect]
     Active Substance: GLIMEPIRIDE
     Dosage: 1.5 MG, UNK
     Route: 048
  22. AMOXICILLIN. [Concomitant]
     Active Substance: AMOXICILLIN
     Dosage: 3 G, UNK
     Route: 048
     Dates: start: 20180529
  23. METFORMIN [Suspect]
     Active Substance: METFORMIN HYDROCHLORIDE
     Indication: TYPE 2 DIABETES MELLITUS
     Dosage: 2000 MG, UNK
     Route: 048
  24. LEVOTHYROX [Concomitant]
     Active Substance: LEVOTHYROXINE
     Dosage: 75 MG
     Route: 048

REACTIONS (2)
  - Hypoglycaemia [Recovered/Resolved]
  - Palpitations [Recovered/Resolved]

NARRATIVE: CASE EVENT DATE: 20180606
